FAERS Safety Report 8222121-8 (Version None)
Quarter: 2012Q1

REPORT INFORMATION
  Report Type: 
  Country: None (occurrence: None)
  Receive Date: 20120320
  Receipt Date: 20120313
  Transmission Date: 20120608
  Serious: Yes (Other)
  Sender: FDA-Public Use
  Company Number: FR-MERCK-1203USA01891

PATIENT
  Age: 78 Year
  Sex: Male

DRUGS (13)
  1. CLARITHROMYCIN [Suspect]
     Indication: LEGIONELLA INFECTION
     Route: 048
     Dates: start: 20120126, end: 20120212
  2. KERLONE [Concomitant]
     Route: 065
  3. PRAXILENE [Concomitant]
     Route: 065
  4. IMOVANE [Concomitant]
     Route: 065
  5. VYTORIN [Suspect]
     Route: 048
     Dates: end: 20120212
  6. ASPIRIN [Concomitant]
     Route: 065
  7. INDAPAMIDE [Concomitant]
     Route: 065
  8. LEVOFLOXACIN [Concomitant]
     Indication: LEGIONELLA INFECTION
     Route: 048
     Dates: start: 20120116, end: 20120202
  9. MICARDIS [Concomitant]
     Route: 065
  10. NEXIUM [Concomitant]
     Route: 065
  11. LEVOTHYROXINE SODIUM [Concomitant]
     Route: 065
  12. AVODART [Concomitant]
     Route: 065
  13. LANTUS [Concomitant]
     Route: 065

REACTIONS (2)
  - DRUG INTERACTION [None]
  - RHABDOMYOLYSIS [None]
